FAERS Safety Report 5977451-7 (Version None)
Quarter: 2008Q4

REPORT INFORMATION
  Report Type: 
  Country: None (occurrence: None)
  Receive Date: 20081203
  Receipt Date: 20081124
  Transmission Date: 20090506
  Serious: Yes (Life-Threatening)
  Sender: FDA-Public Use
  Company Number: B0535398A

PATIENT
  Age: 79 Year
  Sex: Female
  Weight: 50 kg

DRUGS (14)
  1. ARIXTRA [Suspect]
     Indication: PHLEBITIS
     Dosage: 2.5MG PER DAY
     Route: 058
     Dates: start: 20080717, end: 20080802
  2. PROFENID [Concomitant]
     Route: 065
     Dates: start: 20080720
  3. METFORMIN HCL [Concomitant]
     Dosage: 500MG TWICE PER DAY
     Route: 065
  4. DAFALGAN [Concomitant]
     Dosage: 3UNIT PER DAY
     Route: 065
     Dates: start: 20080718, end: 20080723
  5. LASIX [Concomitant]
     Dosage: 40MG PER DAY
     Route: 065
  6. COVERSYL [Concomitant]
     Dosage: 4MG PER DAY
     Route: 065
     Dates: start: 20080724
  7. IXPRIM [Concomitant]
     Route: 065
  8. NEXIUM [Concomitant]
     Route: 065
  9. ACEBUTOLOL [Concomitant]
     Route: 065
  10. ZOLPIDEM [Concomitant]
     Route: 065
  11. ROCEPHIN [Concomitant]
     Route: 065
  12. OFLOXACIN [Concomitant]
     Route: 065
  13. NEURONTIN [Concomitant]
     Route: 065
     Dates: start: 20080719, end: 20080720
  14. IMODIUM [Concomitant]
     Route: 065

REACTIONS (7)
  - ACTIVATED PARTIAL THROMBOPLASTIN TIME PROLONGED [None]
  - ANAEMIA [None]
  - INCISION SITE HAEMATOMA [None]
  - POST PROCEDURAL HAEMORRHAGE [None]
  - PROTHROMBIN LEVEL DECREASED [None]
  - RENAL FAILURE [None]
  - SEPTIC SHOCK [None]
